FAERS Safety Report 5571164-1 (Version None)
Quarter: 2007Q4

REPORT INFORMATION
  Report Type: 
  Country: None (occurrence: None)
  Receive Date: 20071221
  Receipt Date: 20061130
  Transmission Date: 20080405
  Serious: No
  Sender: FDA-Public Use
  Company Number: A0630469A

PATIENT
  Age: 46 Year
  Sex: Female
  Weight: 57.7 kg

DRUGS (5)
  1. FLONASE [Suspect]
     Indication: SINUS CONGESTION
     Route: 045
  2. TYLENOL [Suspect]
     Indication: SINUS CONGESTION
     Route: 048
     Dates: start: 20061112
  3. ANTIBIOTIC [Concomitant]
     Route: 048
     Dates: start: 20061102
  4. METAMIZOLE SODIUM [Concomitant]
  5. LANTUS [Concomitant]

REACTIONS (1)
  - DRUG INEFFECTIVE [None]
